FAERS Safety Report 17339917 (Version 1)
Quarter: 2020Q1

REPORT INFORMATION
  Report Type: Spontaneous
  Country: US (occurrence: US)
  Receive Date: 20200129
  Receipt Date: 20200129
  Transmission Date: 20200409
  Serious: No
  Sender: FDA-Public Use
  Company Number: US-ALLERGAN-1922258US

PATIENT
  Age: 48 Year
  Sex: Female

DRUGS (3)
  1. MARIJUANA [Concomitant]
     Active Substance: CANNABIS SATIVA SUBSP. INDICA TOP
     Route: 048
  2. BOTOX [Suspect]
     Active Substance: ONABOTULINUMTOXINA
     Dosage: ACTUAL: 5 UNITS AT EACH INJECTION SITE, 31 INJECTIONS
     Route: 030
     Dates: start: 201901, end: 201901
  3. BOTOX [Suspect]
     Active Substance: ONABOTULINUMTOXINA
     Indication: MIGRAINE
     Dosage: ACTUAL: 5 UNITS AT EACH INJECTION SITE, 31 INJECTIONS
     Route: 030
     Dates: start: 201904, end: 201904

REACTIONS (2)
  - Eyelid ptosis [Unknown]
  - Formication [Recovered/Resolved]
